FAERS Safety Report 12167516 (Version 1)
Quarter: 2016Q1

REPORT INFORMATION
  Report Type: Spontaneous
  Country: US (occurrence: US)
  Receive Date: 20160310
  Receipt Date: 20160310
  Transmission Date: 20160526
  Serious: No
  Sender: FDA-Public Use
  Company Number: US-GLAXOSMITHKLINE-US2016GSK033602

PATIENT
  Sex: Female

DRUGS (2)
  1. CARVEDILOL TABLET [Suspect]
     Active Substance: CARVEDILOL
     Indication: CARDIAC DISORDER
     Dosage: UNK, BID
     Dates: start: 201508
  2. CARVEDILOL TABLET [Suspect]
     Active Substance: CARVEDILOL
     Dosage: UNK, TID

REACTIONS (4)
  - Intentional product use issue [Unknown]
  - Adverse drug reaction [Unknown]
  - Inappropriate schedule of drug administration [Unknown]
  - Feeling abnormal [Unknown]
